FAERS Safety Report 13251693 (Version 1)
Quarter: 2017Q1

REPORT INFORMATION
  Report Type: Spontaneous
  Country: US (occurrence: US)
  Receive Date: 20170220
  Receipt Date: 20170220
  Transmission Date: 20170428
  Serious: Yes (Hospitalization, Disabling, Other)
  Sender: FDA-Public Use
  Company Number: US-009507513-1201USA00337

PATIENT
  Sex: Female
  Weight: 89.81 kg

DRUGS (13)
  1. ESTROGEN NOS [Concomitant]
     Active Substance: ESTROGENS
     Indication: PREMATURE MENOPAUSE
     Route: 065
     Dates: end: 1999
  2. NICODERM CQ [Concomitant]
     Active Substance: NICOTINE
     Indication: EX-TOBACCO USER
     Route: 065
  3. DERMATOLOGIC (UNSPECIFIED) [Concomitant]
     Active Substance: UNSPECIFIED INGREDIENT
     Indication: ROSACEA
     Dosage: UNK %, HS
     Route: 065
  4. AZMACORT [Concomitant]
     Active Substance: TRIAMCINOLONE ACETONIDE
     Indication: ASTHMA
     Dosage: UNK UNK, PRN
     Route: 055
  5. NICOTINE. [Concomitant]
     Active Substance: NICOTINE
     Indication: EX-TOBACCO USER
     Route: 065
  6. FOSAMAX [Suspect]
     Active Substance: ALENDRONATE SODIUM
     Dosage: UNK
     Route: 048
     Dates: end: 20080917
  7. ZYBAN [Concomitant]
     Active Substance: BUPROPION HYDROCHLORIDE
     Indication: EX-TOBACCO USER
     Route: 065
     Dates: start: 20001227
  8. FOSAMAX [Suspect]
     Active Substance: ALENDRONATE SODIUM
     Indication: OSTEOPOROSIS
     Dosage: 70 MG, QW
     Route: 048
     Dates: start: 200104, end: 201008
  9. SEREVENT DISKUS [Concomitant]
     Active Substance: SALMETEROL XINAFOATE
     Indication: ASTHMA
     Route: 055
  10. ADVAIR HFA [Concomitant]
     Active Substance: FLUTICASONE PROPIONATE\SALMETEROL XINAFOATE
     Indication: ASTHMA
     Dosage: UNK DF, BID
     Route: 055
     Dates: start: 20011228
  11. FOSAMAX [Suspect]
     Active Substance: ALENDRONATE SODIUM
     Dosage: 70 MG, UNK
     Route: 048
  12. WELLBUTRIN [Concomitant]
     Active Substance: BUPROPION HYDROCHLORIDE
     Indication: EX-TOBACCO USER
     Route: 065
     Dates: end: 200108
  13. MAXAIR [Concomitant]
     Active Substance: PIRBUTEROL ACETATE
     Indication: ASTHMA
     Dosage: UNK UNK, PRN
     Route: 055

REACTIONS (48)
  - Constipation [Unknown]
  - Stress urinary incontinence [Unknown]
  - Vulvovaginal dryness [Unknown]
  - Loss of libido [Unknown]
  - Chronic obstructive pulmonary disease [Not Recovered/Not Resolved]
  - Plantar fasciitis [Unknown]
  - Stress fracture [Recovered/Resolved]
  - Cystitis interstitial [Unknown]
  - Spinal column stenosis [Unknown]
  - Drug ineffective [Unknown]
  - Postmenopausal haemorrhage [Unknown]
  - Palpitations [Unknown]
  - Low turnover osteopathy [Not Recovered/Not Resolved]
  - Stress urinary incontinence [Unknown]
  - Gout [Unknown]
  - Sinus bradycardia [Unknown]
  - Osteoarthritis [Unknown]
  - Weight increased [Unknown]
  - Bronchitis [Unknown]
  - Skin irritation [Unknown]
  - Pain in extremity [Unknown]
  - Urge incontinence [Unknown]
  - Lower limb fracture [Unknown]
  - Joint effusion [Unknown]
  - Musculoskeletal disorder [Unknown]
  - Restless legs syndrome [Not Recovered/Not Resolved]
  - Mitral valve incompetence [Not Recovered/Not Resolved]
  - Cystitis [Not Recovered/Not Resolved]
  - Patellofemoral pain syndrome [Unknown]
  - Meniscus injury [Unknown]
  - Oropharyngeal pain [Unknown]
  - Vulvovaginal candidiasis [Unknown]
  - Pain in extremity [Unknown]
  - Dyspepsia [Unknown]
  - Mitral valve prolapse [Not Recovered/Not Resolved]
  - Hiatus hernia [Unknown]
  - Fall [Unknown]
  - Fracture nonunion [Unknown]
  - Gastrooesophageal reflux disease [Not Recovered/Not Resolved]
  - Syncope [Unknown]
  - Gastrooesophageal reflux disease [Unknown]
  - Diabetes mellitus [Unknown]
  - Femur fracture [Not Recovered/Not Resolved]
  - Lipoma [Unknown]
  - Asthma [Unknown]
  - Insomnia [Unknown]
  - Endometrial thickening [Unknown]
  - Bone contusion [Unknown]

NARRATIVE: CASE EVENT DATE: 200106
